FAERS Safety Report 24235041 (Version 1)
Quarter: 2024Q3

REPORT INFORMATION
  Report Type: Spontaneous
  Country: IE (occurrence: IE)
  Receive Date: 20240821
  Receipt Date: 20240821
  Transmission Date: 20241017
  Serious: Yes (Hospitalization)
  Sender: PURDUE
  Company Number: None

PATIENT
  Age: 8 Decade
  Sex: Female

DRUGS (43)
  1. MORPHINE SULFATE [Suspect]
     Active Substance: MORPHINE SULFATE
     Indication: Pain management
     Dosage: 22.5 MILLIGRAM
     Route: 065
  2. MORPHINE SULFATE [Suspect]
     Active Substance: MORPHINE SULFATE
     Dosage: 40 MILLIGRAM
     Route: 065
  3. MORPHINE SULFATE [Suspect]
     Active Substance: MORPHINE SULFATE
     Dosage: INFUSION (160 MILLIGRAM)
     Route: 058
  4. MORPHINE SULFATE [Suspect]
     Active Substance: MORPHINE SULFATE
     Dosage: 30 MILLIGRAM
     Route: 065
  5. MORPHINE SULFATE [Suspect]
     Active Substance: MORPHINE SULFATE
     Dosage: 35 MILLIGRAM
     Route: 065
  6. MORPHINE SULFATE [Suspect]
     Active Substance: MORPHINE SULFATE
     Dosage: INFUSION (80 MILLIGRAM)
     Route: 058
  7. MORPHINE SULFATE [Suspect]
     Active Substance: MORPHINE SULFATE
     Dosage: 15 MILLIGRAM
     Route: 065
  8. MORPHINE SULFATE [Suspect]
     Active Substance: MORPHINE SULFATE
     Dosage: 27.5 MILLIGRAM
     Route: 065
  9. MORPHINE SULFATE [Suspect]
     Active Substance: MORPHINE SULFATE
     Dosage: 55 MILLIGRAM
     Route: 065
  10. MORPHINE SULFATE [Suspect]
     Active Substance: MORPHINE SULFATE
     Dosage: 5 MILLIGRAM
     Route: 065
  11. MORPHINE SULFATE [Suspect]
     Active Substance: MORPHINE SULFATE
     Dosage: INFUSION (110 MILLIGRAM)
     Route: 058
  12. MORPHINE SULFATE [Suspect]
     Active Substance: MORPHINE SULFATE
     Dosage: 10 MILLIGRAM
     Route: 065
  13. MIDAZOLAM [Suspect]
     Active Substance: MIDAZOLAM
     Indication: Palliative care
     Dosage: INFUSION (20 MILLIGRAM)
     Route: 058
  14. MIDAZOLAM [Suspect]
     Active Substance: MIDAZOLAM
     Dosage: 10 MILLIGRAM
     Route: 065
  15. MIDAZOLAM [Suspect]
     Active Substance: MIDAZOLAM
     Dosage: 15 MILLIGRAM
     Route: 065
  16. MIDAZOLAM [Suspect]
     Active Substance: MIDAZOLAM
     Dosage: INFUSION (40 MILLIGRAM)
     Route: 058
  17. MIDAZOLAM [Suspect]
     Active Substance: MIDAZOLAM
     Dosage: INFUSION (10 MILLIGRAM)
     Route: 058
  18. MIDAZOLAM [Suspect]
     Active Substance: MIDAZOLAM
     Dosage: 5 MILLIGRAM
     Route: 065
  19. PROCYCLIDINE [Suspect]
     Active Substance: PROCYCLIDINE
     Indication: Akathisia
     Dosage: 5 MILLIGRAM
     Route: 030
  20. DICLOFENAC [Suspect]
     Active Substance: DICLOFENAC
     Indication: Analgesic intervention supportive therapy
     Dosage: 150 MILLIGRAM
     Route: 065
  21. SCOPOLAMINE HYDROBROMIDE [Suspect]
     Active Substance: SCOPOLAMINE HYDROBROMIDE
     Indication: Vomiting
     Dosage: INFUSION (2.4 MILLIGRAM)
     Route: 058
  22. SCOPOLAMINE HYDROBROMIDE [Suspect]
     Active Substance: SCOPOLAMINE HYDROBROMIDE
     Indication: Increased upper airway secretion
  23. LEVOMEPROMAZINE HYDROCHLORIDE [Suspect]
     Active Substance: LEVOMEPROMAZINE HYDROCHLORIDE
     Indication: Vomiting
     Dosage: 12.5 MILLIGRAM
     Route: 065
  24. LEVOMEPROMAZINE HYDROCHLORIDE [Suspect]
     Active Substance: LEVOMEPROMAZINE HYDROCHLORIDE
     Indication: Nausea
     Dosage: 6.25 MILLIGRAM
     Route: 065
  25. LEVOMEPROMAZINE HYDROCHLORIDE [Suspect]
     Active Substance: LEVOMEPROMAZINE HYDROCHLORIDE
     Dosage: INFUSION (25 MILLIGRAM)
     Route: 058
  26. FUROSEMIDE [Suspect]
     Active Substance: FUROSEMIDE
     Indication: Increased upper airway secretion
     Dosage: 40 MILLIGRAM
     Route: 065
  27. OCTREOTIDE [Suspect]
     Active Substance: OCTREOTIDE\OCTREOTIDE ACETATE
     Indication: Palliative care
     Dosage: INFUSION (0.5 MILLIGRAM)
     Route: 058
  28. OCTREOTIDE [Suspect]
     Active Substance: OCTREOTIDE\OCTREOTIDE ACETATE
     Dosage: INFUSION (1 MILLIGRAM)
     Route: 058
  29. ALFENTANIL [Suspect]
     Active Substance: ALFENTANIL
     Indication: Analgesic therapy
     Dosage: INFUSION (1 MILLIGRAM)
     Route: 058
  30. ALFENTANIL [Suspect]
     Active Substance: ALFENTANIL
     Dosage: INFUSION (1.6 MILLIGRAM)
     Route: 058
  31. ALFENTANIL [Suspect]
     Active Substance: ALFENTANIL
     Dosage: INFUSION (2.5 MILLIGRAM)
     Route: 058
  32. ALFENTANIL [Suspect]
     Active Substance: ALFENTANIL
     Dosage: INFUSION (4.5 MILLIGRAM)
     Route: 058
  33. ALFENTANIL [Suspect]
     Active Substance: ALFENTANIL
     Dosage: INFUSION (3.5 MILLIGRAM)
     Route: 058
  34. BUTYLSCOPOLAMINE BROMIDE [Suspect]
     Active Substance: BUTYLSCOPOLAMINE BROMIDE
     Indication: Increased upper airway secretion
     Dosage: 40 MILLIGRAM
     Route: 065
  35. BUTYLSCOPOLAMINE BROMIDE [Suspect]
     Active Substance: BUTYLSCOPOLAMINE BROMIDE
     Dosage: 20 MILLIGRAM
     Route: 065
  36. BUTYLSCOPOLAMINE BROMIDE [Suspect]
     Active Substance: BUTYLSCOPOLAMINE BROMIDE
     Dosage: 80 MILLIGRAM
     Route: 065
  37. BUTYLSCOPOLAMINE BROMIDE [Suspect]
     Active Substance: BUTYLSCOPOLAMINE BROMIDE
     Dosage: 60 MILLIGRAM
     Route: 065
  38. HALOPERIDOL [Suspect]
     Active Substance: HALOPERIDOL
     Indication: Terminal agitation
     Dosage: INFUSION (2 MILLIGRAM)
     Route: 058
  39. HALOPERIDOL [Suspect]
     Active Substance: HALOPERIDOL
     Dosage: 2 MILLIGRAM
     Route: 065
  40. HALOPERIDOL [Suspect]
     Active Substance: HALOPERIDOL
     Dosage: INFUSION (1 MILLIGRAM)
     Route: 058
  41. GLYCOPYRROLATE [Suspect]
     Active Substance: GLYCOPYRROLATE
     Indication: Increased upper airway secretion
     Dosage: INFUSION (3.6 MILLIGRAM)
     Route: 058
  42. GLYCOPYRROLATE [Suspect]
     Active Substance: GLYCOPYRROLATE
     Dosage: INFUSION (2.4 MILLIGRAM)
     Route: 058
  43. GLYCOPYRROLATE [Suspect]
     Active Substance: GLYCOPYRROLATE
     Dosage: 0.6 MILLIGRAM
     Route: 065

REACTIONS (3)
  - Therapy non-responder [Unknown]
  - Psychotic disorder [Unknown]
  - Anticholinergic syndrome [Unknown]
